FAERS Safety Report 12245982 (Version 1)
Quarter: 2016Q2

REPORT INFORMATION
  Report Type: Report from Study
  Country: JP (occurrence: JP)
  Receive Date: 20160407
  Receipt Date: 20160407
  Transmission Date: 20160815
  Serious: Yes (Death)
  Sender: FDA-Public Use
  Company Number: JP-009507513-1602JPN012938

PATIENT
  Age: 69 Year
  Sex: Female
  Weight: 43.5 kg

DRUGS (6)
  1. PREDONINE [Concomitant]
     Active Substance: PREDNISOLONE\PREDNISOLONE ACETATE\PREDNISOLONE SODIUM SUCCINATE
     Dosage: DAILY DOSE UNKNOWN, FORMULATION: POR
     Route: 048
     Dates: start: 20131004
  2. TEMODAL [Suspect]
     Active Substance: TEMOZOLOMIDE
     Indication: ANAPLASTIC ASTROCYTOMA
     Dosage: 75 MG/M2, QD
     Route: 048
     Dates: start: 20131012, end: 20131115
  3. NEXIUM [Concomitant]
     Active Substance: ESOMEPRAZOLE MAGNESIUM
     Indication: PROPHYLAXIS
     Dosage: DAILY DOSE UNKNOWN, FORMULATION: POR
     Route: 048
     Dates: start: 20131009
  4. KYTRIL [Concomitant]
     Active Substance: GRANISETRON HYDROCHLORIDE
     Indication: PROPHYLAXIS
     Dosage: DAILY DOSE UNKNOWN, FORMULATION: POR
     Route: 048
     Dates: start: 20131002
  5. TEMOZOLOMIDE. [Suspect]
     Active Substance: TEMOZOLOMIDE
     Indication: ASTROCYTOMA
     Dosage: 75 MG/M2, QD
     Route: 041
     Dates: start: 20131002, end: 20131011
  6. EXCEGRAN [Concomitant]
     Active Substance: ZONISAMIDE
     Indication: PROPHYLAXIS
     Dosage: DAILY DOSE UNKNOWN, FORMULATION: POR
     Route: 048
     Dates: start: 20130923

REACTIONS (2)
  - Sensory disturbance [Not Recovered/Not Resolved]
  - Death [Fatal]

NARRATIVE: CASE EVENT DATE: 20131015
